FAERS Safety Report 9351292 (Version 1)
Quarter: 2013Q2

REPORT INFORMATION
  Report Type: Spontaneous
  Country: GB (occurrence: GB)
  Receive Date: 20130617
  Receipt Date: 20130617
  Transmission Date: 20140414
  Serious: Yes (Hospitalization)
  Sender: FDA-Public Use
  Company Number: PHHY2013GB058565

PATIENT
  Sex: Male

DRUGS (8)
  1. OXALIPLATIN [Suspect]
     Indication: COLORECTAL CANCER
     Dosage: 260 MG
     Route: 042
     Dates: start: 20130501, end: 20130501
  2. OXALIPLATIN [Suspect]
     Dosage: 260 MG
     Route: 042
     Dates: start: 20130529, end: 20130529
  3. AVASTIN [Suspect]
     Indication: COLORECTAL CANCER
     Dosage: 750 MG
     Dates: start: 20130501, end: 20130501
  4. AVASTIN [Suspect]
     Dosage: 750 MG
     Dates: start: 20130529, end: 20130529
  5. LOPERAMIDE [Concomitant]
     Indication: DIARRHOEA
     Dosage: 2 MG
     Route: 048
     Dates: start: 20130501
  6. METOCLOPRAMIDE [Concomitant]
     Indication: NAUSEA
     Dosage: 10-20 MG
     Dates: start: 20130501
  7. BENZYDAMINE [Concomitant]
     Indication: MUCOSAL INFLAMMATION
     Dosage: 10 ML, QID
     Route: 050
     Dates: start: 20130501
  8. CAPECITABINE [Concomitant]
     Indication: COLORECTAL CANCER
     Dosage: 200 MG, BID
     Route: 048
     Dates: start: 20130501, end: 20130529

REACTIONS (5)
  - Syncope [Unknown]
  - Loss of consciousness [Recovered/Resolved]
  - Feeling cold [Recovered/Resolved]
  - Vomiting [Recovered/Resolved]
  - Neurological symptom [Unknown]
